FAERS Safety Report 4975044-1 (Version None)
Quarter: 2006Q2

REPORT INFORMATION
  Report Type: 
  Country: None (occurrence: None)
  Receive Date: 20060414
  Receipt Date: 20060414
  Transmission Date: 20061013
  Serious: Yes (Life-Threatening)
  Sender: FDA-Public Use
  Company Number: None

PATIENT
  Age: 59 Year
  Sex: Female

DRUGS (1)
  1. NEOSTIGMINE [Suspect]
     Indication: ILEUS
     Dosage: 2 MG    ONE TIME   IV BOLUS
     Route: 040
     Dates: start: 20051208, end: 20051208

REACTIONS (2)
  - BLOOD PRESSURE DECREASED [None]
  - PROCEDURAL COMPLICATION [None]
